FAERS Safety Report 17262281 (Version 3)
Quarter: 2020Q1

REPORT INFORMATION
  Report Type: Spontaneous
  Country: JP (occurrence: JP)
  Receive Date: 20200113
  Receipt Date: 20200128
  Transmission Date: 20200409
  Serious: Yes (Death)
  Sender: FDA-Public Use
  Company Number: JP-PFIZER INC-2020010389

PATIENT
  Age: 73 Year
  Sex: Male

DRUGS (2)
  1. PACLITAXEL. [Suspect]
     Active Substance: PACLITAXEL
     Indication: HEPATIC ANGIOSARCOMA
     Dosage: 100 MG/M2, WEEKLY (ADMINISTERED ONCE PER WEEK)
  2. PAZOPANIB [Suspect]
     Active Substance: PAZOPANIB
     Indication: HEPATIC ANGIOSARCOMA
     Dosage: UNK

REACTIONS (1)
  - Performance status decreased [Fatal]
